FAERS Safety Report 5911732-8 (Version None)
Quarter: 2008Q4

REPORT INFORMATION
  Report Type: 
  Country: None (occurrence: None)
  Receive Date: 20081008
  Receipt Date: 20080927
  Transmission Date: 20090506
  Serious: Yes (Other)
  Sender: FDA-Public Use
  Company Number: US-RANBAXY-2008US-16745

PATIENT

DRUGS (4)
  1. ISOTRETINOIN [Suspect]
     Indication: DRUG USE FOR UNKNOWN INDICATION
     Dosage: 40 MG, BID
     Dates: start: 20080626, end: 20080728
  2. ISOTRETINOIN [Suspect]
     Dosage: 40 MG, BID
     Dates: start: 20080220, end: 20080522
  3. ISOTRETINOIN [Suspect]
     Dosage: 10 MG, UNK
     Route: 048
  4. ISOTRETINOIN [Suspect]

REACTIONS (1)
  - PREGNANCY [None]
